FAERS Safety Report 6939334-5 (Version None)
Quarter: 2010Q3

REPORT INFORMATION
  Report Type: 
  Country: None (occurrence: None)
  Receive Date: 20100824
  Receipt Date: 20100812
  Transmission Date: 20110219
  Serious: Yes (Life-Threatening, Hospitalization, Disabling)
  Sender: FDA-Public Use
  Company Number: TR-GENENTECH-305503

PATIENT
  Sex: Female
  Weight: 55 kg

DRUGS (4)
  1. MABTHERA [Suspect]
     Indication: DIFFUSE LARGE B-CELL LYMPHOMA
     Dosage: 550 MG, UNK
     Route: 042
     Dates: start: 20100724, end: 20100724
  2. ARA-C [Concomitant]
     Indication: DIFFUSE LARGE B-CELL LYMPHOMA
     Dosage: 2000 MG, UNK
     Route: 042
     Dates: start: 20100724, end: 20100724
  3. DEXAMETASONE [Concomitant]
     Indication: DIFFUSE LARGE B-CELL LYMPHOMA
     Dosage: 40 MG, UNK
     Route: 042
     Dates: start: 20100724, end: 20100724
  4. CISPLATIN [Concomitant]
     Indication: DIFFUSE LARGE B-CELL LYMPHOMA
     Dosage: 150 MG, UNK
     Route: 042
     Dates: start: 20100724, end: 20100724

REACTIONS (4)
  - FEBRILE NEUTROPENIA [None]
  - PARAPARESIS [None]
  - PARAPLEGIA [None]
  - PROGRESSIVE MULTIFOCAL LEUKOENCEPHALOPATHY [None]
